FAERS Safety Report 7399268-1 (Version None)
Quarter: 2011Q1

REPORT INFORMATION
  Report Type: 
  Country: None (occurrence: None)
  Receive Date: 20110301
  Receipt Date: 20100203
  Transmission Date: 20110831
  Serious: Yes (Death)
  Sender: FDA-Public Use
  Company Number: RB-18006-2009

PATIENT
  Age: 27 Year
  Sex: Male

DRUGS (4)
  1. EFFEXOR [Suspect]
     Indication: ANXIETY
  2. CLONAZEPAM [Suspect]
     Indication: ANXIETY
  3. PRILOSEC [Concomitant]
  4. SUBOXONE [Suspect]
     Indication: DRUG DEPENDENCE
     Dosage: (TAKES 20 TO 24 MG DAILY SUBLINGUAL)
     Route: 060
     Dates: start: 20080401, end: 20090701

REACTIONS (2)
  - INJURY [None]
  - ROAD TRAFFIC ACCIDENT [None]
